FAERS Safety Report 7148694-4 (Version None)
Quarter: 2010Q4

REPORT INFORMATION
  Report Type: 
  Country: None (occurrence: None)
  Receive Date: 20101209
  Receipt Date: 20101129
  Transmission Date: 20110411
  Serious: Yes (Hospitalization)
  Sender: FDA-Public Use
  Company Number: JP-ROCHE-719847

PATIENT
  Sex: Female

DRUGS (11)
  1. GRANISETRON HYDROCHLORIDE [Suspect]
     Indication: PREMEDICATION
     Dosage: DRUG NAME:KYTRIL(GRANISETRON)
     Route: 048
     Dates: start: 20100616, end: 20100711
  2. GRANISETRON HYDROCHLORIDE [Suspect]
     Indication: PROPHYLAXIS OF NAUSEA AND VOMITING
     Dosage: DRUG NAME: KYTRIL 3MG BAG(GRANISETRON)
     Route: 041
     Dates: start: 20100616
  3. TAXOTERE [Suspect]
     Indication: BREAST CANCER RECURRENT
     Dosage: DRUG NAME:TAXOTERE(DOCETAXEL HYDRATE),
     Route: 041
     Dates: start: 20100616
  4. TAXOTERE [Suspect]
     Dosage: DOSE OF DOCETAXEL WAS REDUCED TO 109MG/BODY DUE TO ADVERSE EVENT OF PULMONARY ARTERY THROMBOSIS
     Route: 041
     Dates: start: 20100818
  5. DECADRON [Suspect]
     Indication: PREMEDICATION
     Dosage: DRUG NAME:DECADRON(DEXAMETHASONE SODIUM PHOSPHATE)
     Route: 041
     Dates: start: 20100616
  6. CHLORPHENIRAMINE MALEATE [Suspect]
     Indication: PREMEDICATION
     Dosage: DRUG NAME: POLARAMINE(CHLORPHENIRAMINE MALEATE)
     Route: 041
     Dates: start: 20100616
  7. GASTER [Suspect]
     Indication: PREMEDICATION
     Route: 041
     Dates: start: 20100616
  8. NAUZELIN [Suspect]
     Indication: PREMEDICATION
     Route: 048
     Dates: start: 20100616, end: 20100711
  9. DECADRON [Suspect]
     Route: 048
     Dates: start: 20100616, end: 20100711
  10. ZOMETA [Suspect]
     Indication: METASTASES TO BONE
     Dosage: DRUG NAME: ZOMETA(ZOLEDRONIC ACID HYDRATE)
     Route: 041
     Dates: start: 20100616
  11. PYDOXAL [Suspect]
     Indication: PROPHYLAXIS
     Route: 048
     Dates: start: 20100616

REACTIONS (5)
  - ALOPECIA [None]
  - FATIGUE [None]
  - NAUSEA [None]
  - NEUTROPHIL COUNT DECREASED [None]
  - PULMONARY ARTERY THROMBOSIS [None]
